FAERS Safety Report 7046099-8 (Version None)
Quarter: 2010Q4

REPORT INFORMATION
  Report Type: 
  Country: None (occurrence: None)
  Receive Date: 20101013
  Receipt Date: 20101013
  Transmission Date: 20110411
  Serious: No
  Sender: FDA-Public Use
  Company Number: None

PATIENT
  Age: 61 Year
  Sex: Male

DRUGS (1)
  1. PACLITAXEL [Suspect]
     Indication: NON-SMALL CELL LUNG CANCER
     Dosage: 80 MG ONCE IV
     Route: 042
     Dates: start: 20101007, end: 20101007

REACTIONS (4)
  - DIZZINESS [None]
  - HYPOTENSION [None]
  - RESPIRATORY DEPRESSION [None]
  - TACHYCARDIA [None]
